FAERS Safety Report 14662544 (Version 7)
Quarter: 2019Q1

REPORT INFORMATION
  Report Type: Spontaneous
  Country: US (occurrence: US)
  Receive Date: 20180321
  Receipt Date: 20190214
  Transmission Date: 20190417
  Serious: Yes (Hospitalization, Other)
  Sender: FDA-Public Use
  Company Number: US-BRISTOL-MYERS SQUIBB COMPANY-BMS-2018-022553

PATIENT
  Age: 69 Year
  Sex: Female
  Weight: 79.82 kg

DRUGS (1)
  1. ORENCIA [Suspect]
     Active Substance: ABATACEPT
     Indication: PSORIATIC ARTHROPATHY
     Dosage: 125 MG, QWK
     Route: 058
     Dates: start: 201801

REACTIONS (6)
  - Upper respiratory tract infection [Unknown]
  - Transient ischaemic attack [Unknown]
  - Nasopharyngitis [Unknown]
  - Product dose omission [Unknown]
  - Hypersensitivity [Unknown]
  - Arthropathy [Unknown]

NARRATIVE: CASE EVENT DATE: 20190203
